FAERS Safety Report 5241827-6 (Version None)
Quarter: 2007Q1

REPORT INFORMATION
  Report Type: 
  Country: None (occurrence: None)
  Receive Date: 20070220
  Receipt Date: 20070216
  Transmission Date: 20070707
  Serious: Yes (Life-Threatening, Hospitalization, Other)
  Sender: FDA-Public Use
  Company Number: GB9176218SEP2002

PATIENT
  Sex: Female
  Weight: 95 kg

DRUGS (11)
  1. RAPAMUNE [Suspect]
     Indication: RENAL TRANSPLANT
     Route: 048
     Dates: start: 20020617, end: 20020917
  2. RAPAMUNE [Suspect]
     Indication: IMMUNOSUPPRESSION
  3. CANDESARTAN [Concomitant]
     Route: 048
     Dates: start: 20010717
  4. LEVOTHYROXINE SODIUM [Concomitant]
     Route: 048
     Dates: start: 20010619
  5. PREDNISOLONE [Concomitant]
     Route: 048
     Dates: start: 19980519
  6. GLYCERYL TRINITRATE [Concomitant]
     Dosage: 1 DOSE EVERY 1 PRN
     Route: 060
     Dates: start: 20000905
  7. ATORVASTATIN [Concomitant]
     Route: 048
     Dates: start: 20000613
  8. INSULATARD HUMAN [Concomitant]
     Dosage: UNKNOWN DOSE ONCE NIGHTLY
     Route: 058
     Dates: start: 19980604
  9. HUMALOG PEN [Concomitant]
     Dosage: UNKNOWN DOSE THREE TIMES DAILY
     Route: 058
     Dates: start: 19980604
  10. ACETYLSALICYLIC ACID SRT [Concomitant]
     Route: 048
     Dates: start: 20020513
  11. NIFEDIPINE [Concomitant]
     Route: 048
     Dates: start: 20001006

REACTIONS (2)
  - PNEUMONITIS [None]
  - PULMONARY HAEMORRHAGE [None]
